FAERS Safety Report 4654578-3 (Version None)
Quarter: 2005Q2

REPORT INFORMATION
  Report Type: 
  Country: None (occurrence: None)
  Receive Date: 20050503
  Receipt Date: 20050503
  Transmission Date: 20051028
  Serious: Yes (Hospitalization)
  Sender: FDA-Public Use
  Company Number: None

PATIENT
  Age: 78 Year
  Sex: Male
  Weight: 70.1 kg

DRUGS (2)
  1. ZOCOR [Suspect]
     Indication: HYPERLIPIDAEMIA
     Dosage: PO   ONCE DAILY   ORAL
     Route: 048
     Dates: start: 20050101, end: 20050420
  2. AMIODARONE      200MG [Suspect]
     Dosage: PO   ONCE DAILY   ORAL
     Route: 048
     Dates: start: 20050410, end: 20050420

REACTIONS (3)
  - EXERCISE CAPACITY DECREASED [None]
  - FATIGUE [None]
  - SENSATION OF HEAVINESS [None]
